FAERS Safety Report 9771044 (Version 1)
Quarter: 2013Q4

REPORT INFORMATION
  Report Type: Spontaneous
  Country: FR (occurrence: FR)
  Receive Date: 20131218
  Receipt Date: 20131218
  Transmission Date: 20140711
  Serious: Yes (Hospitalization)
  Sender: FDA-Public Use
  Company Number: FR-TEVA-449428ISR

PATIENT
  Age: 44 Year
  Sex: Male

DRUGS (6)
  1. OXALIPLATINE TEVA 5 MG/ML [Suspect]
     Indication: METASTASES TO LIVER
     Dosage: 1 DOSAGE FORMS DAILY; TOMOX PROTOCOL
     Route: 013
     Dates: start: 20130617, end: 20130828
  2. RALTITREXED [Concomitant]
     Indication: METASTASES TO LIVER
     Dosage: TOMOX PROTOCOL
     Route: 013
     Dates: start: 20130617
  3. MORPHIN [Concomitant]
     Route: 040
  4. LIDOCAINE [Concomitant]
     Route: 013
     Dates: start: 20130711
  5. XYLOCAINE [Concomitant]
     Dates: start: 20130828
  6. VENTOLINE [Concomitant]

REACTIONS (5)
  - Generalised erythema [Recovered/Resolved]
  - Hypotension [Recovered/Resolved]
  - Oxygen saturation decreased [Recovered/Resolved]
  - Pruritus [Recovered/Resolved]
  - Dyspnoea [Recovered/Resolved]
